FAERS Safety Report 5660441-1 (Version None)
Quarter: 2008Q1

REPORT INFORMATION
  Report Type: 
  Country: None (occurrence: None)
  Receive Date: 20080311
  Receipt Date: 20071127
  Transmission Date: 20080703
  Serious: Yes (Other)
  Sender: FDA-Public Use
  Company Number: US-BAYER-200713444BCC

PATIENT
  Age: 83 Year
  Sex: Male
  Weight: 73 kg

DRUGS (4)
  1. ALEVE [Suspect]
     Indication: ARTHRALGIA
     Dosage: TOTAL DAILY DOSE: 440 MG  UNIT DOSE: 220 MG
     Route: 048
     Dates: start: 20071022
  2. ALEVE [Suspect]
     Dosage: AS USED: 440/220 MG  UNIT DOSE: 220 MG
     Route: 048
     Dates: start: 20071021
  3. NASACORT AQ [Concomitant]
     Route: 045
     Dates: start: 20070911
  4. CENTRUM VITAMIN [Concomitant]

REACTIONS (7)
  - HYPERSENSITIVITY [None]
  - LIP SWELLING [None]
  - LOCAL SWELLING [None]
  - OEDEMA PERIPHERAL [None]
  - PRURITUS [None]
  - RASH ERYTHEMATOUS [None]
  - RASH GENERALISED [None]
